FAERS Safety Report 7179630-2 (Version None)
Quarter: 2010Q4

REPORT INFORMATION
  Report Type: 
  Country: None (occurrence: None)
  Receive Date: 20101221
  Receipt Date: 20101215
  Transmission Date: 20110411
  Serious: Yes (Hospitalization)
  Sender: FDA-Public Use
  Company Number: JP-ABBOTT-10P-087-0691659-00

PATIENT
  Age: 46 Year
  Sex: Female

DRUGS (3)
  1. KLARICID [Suspect]
     Indication: MYCOBACTERIUM AVIUM COMPLEX INFECTION
     Route: 048
  2. RIFABUTIN [Suspect]
     Indication: MYCOBACTERIUM AVIUM COMPLEX INFECTION
     Dosage: 150 MG, DAILY
     Route: 048
     Dates: start: 20090123, end: 20090213
  3. ESANBUTOL [Suspect]
     Indication: MYCOBACTERIUM AVIUM COMPLEX INFECTION
     Route: 048

REACTIONS (1)
  - LIVER DISORDER [None]
